FAERS Safety Report 13312185 (Version 1)
Quarter: 2017Q1

REPORT INFORMATION
  Report Type: Spontaneous
  Country: US (occurrence: US)
  Receive Date: 20170309
  Receipt Date: 20170309
  Transmission Date: 20170428
  Serious: Yes (Hospitalization)
  Sender: FDA-Public Use
  Company Number: None

PATIENT
  Age: 66 Year
  Sex: Male
  Weight: 88.67 kg

DRUGS (1)
  1. XELODA [Suspect]
     Active Substance: CAPECITABINE
     Dates: end: 20160204

REACTIONS (9)
  - Weight decreased [None]
  - Lethargy [None]
  - Diarrhoea [None]
  - Fatigue [None]
  - Skin warm [None]
  - Acute kidney injury [None]
  - Anorectal discomfort [None]
  - Dry skin [None]
  - Respiratory failure [None]

NARRATIVE: CASE EVENT DATE: 20160204
